FAERS Safety Report 9915128 (Version 2)
Quarter: 2014Q2

REPORT INFORMATION
  Report Type: Spontaneous
  Country: US (occurrence: US)
  Receive Date: 20140220
  Receipt Date: 20140428
  Transmission Date: 20141212
  Serious: Yes (Death, Other)
  Sender: FDA-Public Use
  Company Number: US-ELI_LILLY_AND_COMPANY-US201402005418

PATIENT
  Age: 68 Year
  Sex: Male

DRUGS (5)
  1. AXIRON [Suspect]
     Indication: BLOOD TESTOSTERONE DECREASED
     Dosage: 60 MG, QD
     Route: 062
     Dates: start: 20111109, end: 20121005
  2. AXIRON [Suspect]
     Indication: FATIGUE
     Dosage: 30 MG, QD
     Route: 062
     Dates: start: 20121107
  3. PROZAC [Concomitant]
  4. BUSPAR [Concomitant]
  5. TRAZODONE [Concomitant]

REACTIONS (1)
  - Myocardial infarction [Fatal]
